FAERS Safety Report 6664623-1 (Version None)
Quarter: 2010Q1

REPORT INFORMATION
  Report Type: 
  Country: None (occurrence: None)
  Receive Date: 20100330
  Receipt Date: 20100113
  Transmission Date: 20100710
  Serious: Yes (Hospitalization)
  Sender: FDA-Public Use
  Company Number: 6057280

PATIENT
  Age: 35 Year
  Sex: Female

DRUGS (1)
  1. LEVOTHYROXINE [Suspect]
     Indication: AUTOIMMUNE THYROIDITIS
     Dosage: 100 MCG

REACTIONS (8)
  - BLOOD PRESSURE INCREASED [None]
  - CARDIOLIPIN ANTIBODY POSITIVE [None]
  - CHOREOATHETOSIS [None]
  - DRUG ABUSE [None]
  - HYPERTHYROIDISM [None]
  - INTENTIONAL OVERDOSE [None]
  - RESTLESSNESS [None]
  - TACHYCARDIA [None]
